FAERS Safety Report 6301385-1 (Version None)
Quarter: 2009Q3

REPORT INFORMATION
  Report Type: 
  Country: None (occurrence: None)
  Receive Date: 20090807
  Receipt Date: 20090729
  Transmission Date: 20100115
  Serious: Yes (Hospitalization)
  Sender: FDA-Public Use
  Company Number: GB-ASTRAZENECA-2009SE05313

PATIENT
  Age: 33 Year
  Sex: Male

DRUGS (3)
  1. SEROQUEL [Suspect]
     Indication: SCHIZOPHRENIA
     Route: 048
     Dates: start: 20070101
  2. SEROQUEL [Suspect]
     Indication: MANIA
     Route: 048
     Dates: start: 20070101
  3. ARIPIPRAZOLE [Concomitant]

REACTIONS (4)
  - HYPERHIDROSIS [None]
  - PALLOR [None]
  - PULSE ABSENT [None]
  - WRONG TECHNIQUE IN DRUG USAGE PROCESS [None]
